FAERS Safety Report 8016567-0 (Version None)
Quarter: 2011Q4

REPORT INFORMATION
  Report Type: 
  Country: None (occurrence: None)
  Receive Date: 20111230
  Receipt Date: 20111228
  Transmission Date: 20120403
  Serious: No
  Sender: FDA-Public Use
  Company Number: US-BAYER-2011-124527

PATIENT
  Age: 24 Year
  Sex: Male
  Weight: 82 kg

DRUGS (3)
  1. ALEVE (CAPLET) [Suspect]
     Dosage: 2 TAB USED ONLY ONE TIME
     Dates: start: 20111101, end: 20111101
  2. ASPIRIN [Suspect]
     Route: 048
  3. ALEVE (CAPLET) [Suspect]
     Dosage: UNK
     Dates: end: 20111228

REACTIONS (1)
  - EYE SWELLING [None]
